FAERS Safety Report 6330874-9 (Version None)
Quarter: 2009Q3

REPORT INFORMATION
  Report Type: 
  Country: None (occurrence: None)
  Receive Date: 20090827
  Receipt Date: 20090819
  Transmission Date: 20100115
  Serious: Yes (Other)
  Sender: FDA-Public Use
  Company Number: AU-GENENTECH-286012

PATIENT
  Age: 50 Year
  Sex: Female

DRUGS (5)
  1. MABTHERA [Suspect]
     Indication: TRANSPLANT REJECTION
     Dosage: 500 MG, UNK
     Route: 065
  2. MYCOPHENOLATE MOFETIL [Suspect]
     Indication: PROPHYLAXIS AGAINST TRANSPLANT REJECTION
     Route: 065
  3. CYCLOSPORINE [Suspect]
     Indication: PROPHYLAXIS AGAINST TRANSPLANT REJECTION
     Route: 065
  4. PREDNISOLONE [Suspect]
     Indication: PROPHYLAXIS AGAINST TRANSPLANT REJECTION
     Route: 065
  5. IMMUNE GLOBULIN INTRAVENOUS (HUMAN) [Suspect]
     Indication: TRANSPLANT REJECTION
     Route: 042

REACTIONS (2)
  - CYTOMEGALOVIRUS VIRAEMIA [None]
  - POLYOMAVIRUS-ASSOCIATED NEPHROPATHY [None]
